FAERS Safety Report 7407158-0 (Version None)
Quarter: 2011Q2

REPORT INFORMATION
  Report Type: 
  Country: None (occurrence: None)
  Receive Date: 20110411
  Receipt Date: 20110406
  Transmission Date: 20111010
  Serious: Yes (Hospitalization, Other)
  Sender: FDA-Public Use
  Company Number: US-B.I. PHARMACEUTICALS,INC./RIDGEFIELD-2011-BP-10146BP

PATIENT
  Sex: Male

DRUGS (7)
  1. PRADAXA [Suspect]
     Indication: CARDIAC FAILURE CONGESTIVE
     Route: 048
     Dates: start: 20110331
  2. LANOXIN [Concomitant]
  3. ALLOPURINOL [Concomitant]
     Indication: BLOOD PRESSURE ABNORMAL
  4. BONIVA [Concomitant]
     Indication: OSTEOPOROSIS
  5. MG/K [Concomitant]
     Indication: HYPOVITAMINOSIS
  6. NITROGLYCERIN [Concomitant]
  7. XYLANTIN [Concomitant]
     Indication: GLAUCOMA

REACTIONS (5)
  - HEART RATE DECREASED [None]
  - CARDIAC FAILURE CONGESTIVE [None]
  - CONFUSIONAL STATE [None]
  - GASTROINTESTINAL HAEMORRHAGE [None]
  - ASTHENIA [None]
